FAERS Safety Report 5802998-3 (Version None)
Quarter: 2008Q3

REPORT INFORMATION
  Report Type: 
  Country: None (occurrence: None)
  Receive Date: 20080708
  Receipt Date: 20080626
  Transmission Date: 20090109
  Serious: Yes (Other)
  Sender: FDA-Public Use
  Company Number: JP-ASTRAZENECA-2008AP04477

PATIENT
  Age: 84 Year
  Sex: Female
  Weight: 35 kg

DRUGS (4)
  1. MEROPENEM [Suspect]
     Indication: PNEUMONIA
     Route: 042
     Dates: start: 20080424, end: 20080502
  2. TAKEPRON [Suspect]
     Indication: GASTROINTESTINAL HAEMORRHAGE
     Route: 042
     Dates: start: 20080430, end: 20080505
  3. RBC CONCENTRATE TRANSFUSION [Concomitant]
     Dates: start: 20080430, end: 20080430
  4. RBC CONCENTRATE TRANSFUSION [Concomitant]
     Dates: start: 20080501, end: 20080501

REACTIONS (1)
  - LIVER DISORDER [None]
